FAERS Safety Report 12181285 (Version 3)
Quarter: 2016Q1

REPORT INFORMATION
  Report Type: Report from Study
  Country: US (occurrence: US)
  Receive Date: 20160315
  Receipt Date: 20160315
  Transmission Date: 20160526
  Serious: Yes (Death, Other)
  Sender: FDA-Public Use
  Company Number: US-BRISTOL-MYERS SQUIBB COMPANY-BMS-2016-016770

PATIENT
  Sex: Female
  Weight: 85.7 kg

DRUGS (4)
  1. BELATACEPT [Suspect]
     Active Substance: BELATACEPT
     Indication: IMMUNOSUPPRESSION
     Dosage: 750 MG, UNK
     Route: 065
     Dates: start: 20111122
  2. BELATACEPT [Suspect]
     Active Substance: BELATACEPT
     Dosage: 1000 MG, UNK
     Route: 065
  3. ANTI-1L-2 [Concomitant]
     Indication: PRODUCT USED FOR UNKNOWN INDICATION
     Dosage: 20 MG, UNK (CUMULATIVE)
     Route: 065
     Dates: start: 20111122, end: 20111125
  4. MYCOPHENOLATE MOFETIL. [Concomitant]
     Active Substance: MYCOPHENOLATE MOFETIL
     Indication: IMMUNOSUPPRESSION
     Dosage: 2000 MG, UNK
     Route: 065
     Dates: start: 20111122

REACTIONS (1)
  - Death [Fatal]
